FAERS Safety Report 10161928 (Version 2)
Quarter: 2014Q2

REPORT INFORMATION
  Report Type: Spontaneous
  Country: US (occurrence: US)
  Receive Date: 20140509
  Receipt Date: 20140527
  Transmission Date: 20141212
  Serious: Yes (Hospitalization)
  Sender: FDA-Public Use
  Company Number: US-SA-2014SA057696

PATIENT
  Age: 63 Year
  Sex: Male

DRUGS (9)
  1. LANTUS SOLOSTAR [Suspect]
     Indication: TYPE 1 DIABETES MELLITUS
     Dosage: DOSE:30 UNIT(S)
     Route: 058
     Dates: start: 201305
  2. SOLOSTAR [Concomitant]
     Dates: start: 201305
  3. INSULIN [Concomitant]
  4. NOVOLOG [Concomitant]
  5. LIPITOR [Concomitant]
  6. PLAVIX [Concomitant]
  7. LOSARTAN [Concomitant]
  8. LOVAZA [Concomitant]
  9. EFFEXOR [Concomitant]

REACTIONS (1)
  - Cerebrovascular accident [Unknown]
